FAERS Safety Report 4846612-2 (Version None)
Quarter: 2005Q4

REPORT INFORMATION
  Report Type: 
  Country: None (occurrence: None)
  Receive Date: 20051202
  Receipt Date: 20051121
  Transmission Date: 20060501
  Serious: Yes (Life-Threatening, Hospitalization)
  Sender: FDA-Public Use
  Company Number: ST-2005-008659

PATIENT
  Age: 76 Year
  Sex: Male
  Weight: 48 kg

DRUGS (5)
  1. OLMETEC [Suspect]
     Indication: HYPERTENSION
     Dosage: 10 MG QD PO
     Route: 048
     Dates: start: 20050314, end: 20050922
  2. MAGLAX [Concomitant]
  3. GRAMALIL [Concomitant]
  4. AKINETON [Concomitant]
  5. ADALAT [Concomitant]

REACTIONS (4)
  - LEUKOPENIA [None]
  - NEUTROPHIL COUNT DECREASED [None]
  - PYREXIA [None]
  - VIRAL INFECTION [None]
